FAERS Safety Report 6050280-4 (Version None)
Quarter: 2009Q1

REPORT INFORMATION
  Report Type: 
  Country: None (occurrence: None)
  Receive Date: 20090126
  Receipt Date: 20090113
  Transmission Date: 20090719
  Serious: Yes (Hospitalization, Other)
  Sender: FDA-Public Use
  Company Number: US-ROCHE-494041

PATIENT
  Sex: Male
  Weight: 125 kg

DRUGS (7)
  1. ACCUTANE [Suspect]
     Dosage: STRENGTH REPORTED AS 40 MG AND 80 MG, IT WAS REPORTED THAT THE PATIENT ALTERNATED DAILY BETWEEN 40 +
     Route: 048
     Dates: start: 20001003, end: 20010212
  2. VITAMIN E [Concomitant]
     Route: 048
     Dates: start: 20001003
  3. CETAPHIL [Concomitant]
     Dosage: FORM REPORTED AS CLEANSER GENERIC REPORTED AS CETYL STEARYL ALCOHOL
     Route: 061
     Dates: start: 20001003
  4. CETAPHIL [Concomitant]
     Dosage: GENERIC REPORTED AS CETYL STEARYL ALCOHOL
     Route: 061
     Dates: start: 20001003
  5. ZITHROMAX [Concomitant]
     Indication: RESPIRATORY TRACT INFECTION
     Dosage: DRUG REPORTED AS Z-PACK. DOSAGE REGIMEN REPORTED AS DIRECTED.
     Route: 048
     Dates: start: 20001018
  6. PANCOF [Concomitant]
     Indication: COUGH
     Dosage: DOSAGE REGIMEN REPORTED AS ONE TSPQ 4HR PRN.
     Route: 048
     Dates: start: 20001018
  7. CLARITIN-D [Concomitant]
     Indication: ILL-DEFINED DISORDER
     Dosage: DOSAGE REGIMEN REPORTED AS ONE BID PRN.
     Route: 048
     Dates: start: 20001018

REACTIONS (9)
  - CROHN'S DISEASE [None]
  - CYSTITIS [None]
  - ENTEROVESICAL FISTULA [None]
  - INFLAMMATORY BOWEL DISEASE [None]
  - IRRITABLE BOWEL SYNDROME [None]
  - PNEUMATURIA [None]
  - SMALL INTESTINAL OBSTRUCTION [None]
  - URINARY BLADDER ABSCESS [None]
  - WEIGHT DECREASED [None]
